FAERS Safety Report 4982247-9 (Version None)
Quarter: 2006Q2

REPORT INFORMATION
  Report Type: 
  Country: None (occurrence: None)
  Receive Date: 20060424
  Receipt Date: 20060424
  Transmission Date: 20061013
  Serious: Yes (Other)
  Sender: FDA-Public Use
  Company Number: None

PATIENT
  Age: 37 Year
  Sex: Male
  Weight: 61.2356 kg

DRUGS (2)
  1. DILAUDID [Suspect]
     Indication: PAIN
     Dates: start: 20060414, end: 20060414
  2. DILAUDID [Suspect]
     Indication: TOOTH ABSCESS
     Dates: start: 20060414, end: 20060414

REACTIONS (4)
  - CARDIAC ARREST [None]
  - CYANOSIS [None]
  - HEART RATE DECREASED [None]
  - TACHYCARDIA [None]
